FAERS Safety Report 4489546-8 (Version None)
Quarter: 2004Q4

REPORT INFORMATION
  Report Type: 
  Country: None (occurrence: None)
  Receive Date: 20041025
  Receipt Date: 20041015
  Transmission Date: 20050328
  Serious: Yes (Death)
  Sender: FDA-Public Use
  Company Number: 2004-10-1063

PATIENT
  Age: 66 Year
  Sex: 0

DRUGS (1)
  1. TEMODAR [Suspect]
     Indication: GLIOBLASTOMA MULTIFORME
     Dosage: 400 MG QDX5D ORAL
     Route: 048

REACTIONS (1)
  - DEATH [None]
